FAERS Safety Report 20322827 (Version 1)
Quarter: 2022Q1

REPORT INFORMATION
  Report Type: Spontaneous
  Country: FR (occurrence: FR)
  Receive Date: 20220111
  Receipt Date: 20220111
  Transmission Date: 20220423
  Serious: Yes (Hospitalization)
  Sender: FDA-Public Use
  Company Number: None

PATIENT
  Age: 49 Year
  Sex: Male

DRUGS (4)
  1. SILDENAFIL [Suspect]
     Active Substance: SILDENAFIL
     Dosage: UNSPECIFIED DOSE,THERAPY START DATE:ASKU,THERAPY END DATE :NOT ASKED
     Route: 065
  2. OXYBATE [Suspect]
     Active Substance: OXYBATE
     Dosage: UNSPECIFIED DOSE,THERAPY START DATE:ASKU,THERAPY END DATE :ASKU
     Route: 065
  3. AMYL NITRITE [Suspect]
     Active Substance: AMYL NITRITE
     Dosage: UNSPECIFIED DOSE,THERAPY START DATE:ASKU,THERAPY END DATE :NOT ASKED
     Route: 065
  4. MEPHEDRONE [Suspect]
     Active Substance: MEPHEDRONE
     Dosage: UNSPECIFIED DOSE,THERAPY START DATE:ASKU,THERAPY END DATE:NOT ASKED
     Route: 054

REACTIONS (4)
  - Substance abuse [Unknown]
  - Respiratory disorder [Recovered/Resolved]
  - Hypothermia [Recovered/Resolved]
  - Coma [Recovered/Resolved]

NARRATIVE: CASE EVENT DATE: 20210729
